FAERS Safety Report 14491294 (Version 3)
Quarter: 2018Q1

REPORT INFORMATION
  Report Type: Spontaneous
  Country: IT (occurrence: IT)
  Receive Date: 20180206
  Receipt Date: 20180319
  Transmission Date: 20180509
  Serious: Yes (Other)
  Sender: FDA-Public Use
  Company Number: PHHY2017IT200117

PATIENT
  Age: 70 Year
  Sex: Male

DRUGS (11)
  1. CAPECITABINE. [Suspect]
     Active Substance: CAPECITABINE
     Indication: ADENOCARCINOMA OF COLON
     Dosage: 1000 MG/M2, CYCLIC(ON D1-14 Q3W, FOR 7 CYCLES)
     Route: 065
     Dates: start: 20120401, end: 20131201
  2. OXALIPLATIN. [Suspect]
     Active Substance: OXALIPLATIN
     Indication: ADENOCARCINOMA OF COLON
     Dosage: 130 MG/M2, UNK (ON DAY 1, FOR 7 CYCLES)
     Route: 065
     Dates: start: 20120401
  3. PANITUMUMAB [Suspect]
     Active Substance: PANITUMUMAB
     Dosage: 6 MG/KG, Q2WK (EVERY 14 DAYS)
     Route: 065
     Dates: start: 201410, end: 201506
  4. FOLINIC ACID [Suspect]
     Active Substance: LEUCOVORIN
     Indication: ADENOCARCINOMA OF COLON
     Dosage: 200 MG/M2, UNK (AS A 2-H INFUSION ON DAY 1)
     Route: 065
     Dates: start: 20141001, end: 20150101
  5. FLUOROURACIL. [Suspect]
     Active Substance: FLUOROURACIL
     Indication: ADENOCARCINOMA OF COLON
     Dosage: 400 MG/M2, D1:400/MG/M^2,THEN 2400 MG/M^2
     Route: 040
     Dates: start: 20141001, end: 20150101
  6. PANITUMUMAB [Suspect]
     Active Substance: PANITUMUMAB
     Indication: ADENOCARCINOMA OF COLON
     Dosage: 6 MG/KG, UNK (ON DAY 1) RESTARTED ON JUN-2015 AT 60% OF ORIGINAL DOSE Q3W
     Route: 065
     Dates: start: 201410
  7. IRINOTECAN [Suspect]
     Active Substance: IRINOTECAN
     Indication: ADENOCARCINOMA OF COLON
     Dosage: 180 MG/M2, Q2WK
     Route: 065
     Dates: start: 20141001, end: 20150101
  8. BEVACIZUMAB. [Suspect]
     Active Substance: BEVACIZUMAB
     Dosage: 7.5 MG/KG, CYCLIC (ON D1 OF THE 3-WEEKLY CYCLE, FOR 7 CYCLES)
     Route: 065
     Dates: start: 20131201
  9. BEVACIZUMAB. [Suspect]
     Active Substance: BEVACIZUMAB
     Indication: ADENOCARCINOMA OF COLON
     Dosage: 7.5 MG/KG, CYCLIC (ON D1 OF THE 3-WEEKLY CYCLE, FOR 7 CYCLES)
     Route: 065
     Dates: start: 20120401, end: 20120401
  10. PANITUMUMAB [Suspect]
     Active Substance: PANITUMUMAB
     Dosage: 60% OF THE ORIGINAL DOSE, Q3WK
     Route: 065
     Dates: start: 20150601
  11. LEUCOVORIN. [Concomitant]
     Active Substance: LEUCOVORIN
     Indication: ADENOCARCINOMA OF COLON
     Dosage: UNK
     Route: 065

REACTIONS (6)
  - Palmar-plantar erythrodysaesthesia syndrome [Unknown]
  - Neuropathy peripheral [Unknown]
  - Asthenia [Unknown]
  - Skin toxicity [Unknown]
  - Neutropenia [Unknown]
  - Diarrhoea [Unknown]
